FAERS Safety Report 4447746-7 (Version None)
Quarter: 2004Q3

REPORT INFORMATION
  Report Type: 
  Country: None (occurrence: None)
  Receive Date: 20040913
  Receipt Date: 20040903
  Transmission Date: 20050211
  Serious: Yes (Hospitalization)
  Sender: FDA-Public Use
  Company Number: PHBS2004IT11846

PATIENT
  Age: 31 Year
  Sex: Female

DRUGS (2)
  1. GLEEVEC [Suspect]
     Indication: CHRONIC MYELOID LEUKAEMIA
     Dosage: 400 MG/DAY
     Route: 048
     Dates: start: 20020823, end: 20040812
  2. ZYLORIC [Concomitant]
     Dosage: 150 MG/D
     Route: 048
     Dates: start: 20020823, end: 20040812

REACTIONS (4)
  - MUSCULAR WEAKNESS [None]
  - NYSTAGMUS [None]
  - VERTEBROBASILAR INSUFFICIENCY [None]
  - VERTIGO [None]
